FAERS Safety Report 13255935 (Version 1)
Quarter: 2017Q1

REPORT INFORMATION
  Report Type: Spontaneous
  Country: US (occurrence: US)
  Receive Date: 20170218
  Receipt Date: 20170218
  Transmission Date: 20170428
  Serious: No
  Sender: FDA-Public Use
  Company Number: None

PATIENT
  Age: 40 Year
  Sex: Male
  Weight: 91.8 kg

DRUGS (6)
  1. CENTRUM ADULT VITAMIN DAILY SUPPLEMENT [Concomitant]
  2. BENADRYL [Concomitant]
     Active Substance: DIPHENHYDRAMINE HYDROCHLORIDE
  3. INVEGA SUSTENNA [Suspect]
     Active Substance: PALIPERIDONE PALMITATE
     Indication: BIPOLAR DISORDER
     Dosage: ?          OTHER FREQUENCY:MONTHLY;?
     Route: 030
     Dates: start: 20160930, end: 20170131
  4. ABILIFY [Concomitant]
     Active Substance: ARIPIPRAZOLE
  5. TEGRETOL [Concomitant]
     Active Substance: CARBAMAZEPINE
  6. IBUPROFEN. [Concomitant]
     Active Substance: IBUPROFEN

REACTIONS (6)
  - Abdominal distension [None]
  - Dyskinesia [None]
  - Weight increased [None]
  - Dizziness [None]
  - Tremor [None]
  - Loss of libido [None]

NARRATIVE: CASE EVENT DATE: 20160930
